FAERS Safety Report 25079961 (Version 2)
Quarter: 2025Q2

REPORT INFORMATION
  Report Type: Spontaneous
  Country: US (occurrence: US)
  Receive Date: 20250314
  Receipt Date: 20250530
  Transmission Date: 20250716
  Serious: No
  Sender: INSUD PHARMA
  Company Number: US-INSUD PHARMA-2502US01481

PATIENT

DRUGS (2)
  1. SLYND [Suspect]
     Active Substance: DROSPIRENONE
     Indication: Menstruation irregular
     Dosage: 1 DOSAGE FORM, QD
     Route: 048
     Dates: start: 202412, end: 20250224
  2. SLYND [Suspect]
     Active Substance: DROSPIRENONE
     Indication: Uterine leiomyoma

REACTIONS (2)
  - Heavy menstrual bleeding [Recovered/Resolved]
  - Product use in unapproved indication [Unknown]

NARRATIVE: CASE EVENT DATE: 20241201
